FAERS Safety Report 12702510 (Version 2)
Quarter: 2016Q4

REPORT INFORMATION
  Report Type: Spontaneous
  Country: US (occurrence: US)
  Receive Date: 20160831
  Receipt Date: 20161025
  Transmission Date: 20170207
  Serious: No
  Sender: FDA-Public Use
  Company Number: US-JNJFOC-20160623874

PATIENT
  Sex: Male

DRUGS (1)
  1. STELARA [Suspect]
     Active Substance: USTEKINUMAB
     Indication: PRODUCT USED FOR UNKNOWN INDICATION
     Route: 058
     Dates: start: 20160624

REACTIONS (4)
  - Device issue [Unknown]
  - Incorrect product storage [Unknown]
  - Accidental exposure to product [Unknown]
  - Product packaging issue [Unknown]

NARRATIVE: CASE EVENT DATE: 20160624
